FAERS Safety Report 4390812-5 (Version None)
Quarter: 2004Q3

REPORT INFORMATION
  Report Type: 
  Country: None (occurrence: None)
  Receive Date: 20040706
  Receipt Date: 20040706
  Transmission Date: 20050211
  Serious: No
  Sender: FDA-Public Use
  Company Number: None

PATIENT
  Age: 52 Year
  Sex: Male

DRUGS (1)
  1. OXYBUTRIN [Suspect]
     Indication: URINARY INCONTINENCE
     Dosage: 5 MG PO TID
     Route: 048

REACTIONS (3)
  - ABDOMINAL PAIN [None]
  - ANOREXIA [None]
  - DRY MOUTH [None]
